FAERS Safety Report 16357446 (Version 9)
Quarter: 2019Q3

REPORT INFORMATION
  Report Type: Report from Study
  Country: None (occurrence: NL)
  Receive Date: 20190527
  Receipt Date: 20190921
  Transmission Date: 20191004
  Serious: Yes (Hospitalization)
  Sender: FDA-Public Use
  Company Number: NL-ABBVIE-19S-114-2736250-00

PATIENT
  Sex: Female
  Weight: 70 kg

DRUGS (2)
  1. DUODOPA [Suspect]
     Active Substance: CARBIDOPA\LEVODOPA
     Indication: PARKINSON^S DISEASE
     Dosage: MD 7.0 CD 5.8 ED 2.2 CND 2.5 END 1.2
     Route: 050
     Dates: start: 20190312, end: 2019
  2. DUODOPA [Suspect]
     Active Substance: CARBIDOPA\LEVODOPA
     Dosage: CONTINUOUS DOSE INCREASED WITH 5.8 MILLILITER
     Route: 050
     Dates: start: 2019

REACTIONS (22)
  - Eye movement disorder [Not Recovered/Not Resolved]
  - Rehabilitation therapy [Recovered/Resolved]
  - Memory impairment [Not Recovered/Not Resolved]
  - Incontinence [Not Recovered/Not Resolved]
  - Urinary tract infection [Not Recovered/Not Resolved]
  - Depression [Unknown]
  - Suspiciousness [Recovered/Resolved]
  - Arthropathy [Unknown]
  - Fall [Not Recovered/Not Resolved]
  - Anxiety [Recovered/Resolved]
  - Emotional disorder [Recovered/Resolved]
  - Muscle spasms [Not Recovered/Not Resolved]
  - Malaise [Recovered/Resolved]
  - Sensitive skin [Recovered/Resolved]
  - Stoma site irritation [Unknown]
  - Hallucination [Not Recovered/Not Resolved]
  - Feeling abnormal [Unknown]
  - Dystonia [Not Recovered/Not Resolved]
  - Syncope [Not Recovered/Not Resolved]
  - Dysphagia [Recovered/Resolved]
  - Arthralgia [Not Recovered/Not Resolved]
  - On and off phenomenon [Not Recovered/Not Resolved]

NARRATIVE: CASE EVENT DATE: 2019
